FAERS Safety Report 20584431 (Version 1)
Quarter: 2022Q1

REPORT INFORMATION
  Report Type: Spontaneous
  Country: TW (occurrence: TW)
  Receive Date: 20220311
  Receipt Date: 20220311
  Transmission Date: 20220424
  Serious: Yes (Death, Other)
  Sender: FDA-Public Use
  Company Number: TW-002147023-NVSC2022TW054665

PATIENT

DRUGS (1)
  1. RUXOLITINIB [Suspect]
     Active Substance: RUXOLITINIB
     Indication: Myelofibrosis
     Dosage: UNK
     Route: 048

REACTIONS (28)
  - Transformation to acute myeloid leukaemia [Fatal]
  - Anaemia [Unknown]
  - Tuberculosis [Unknown]
  - Haemorrhage [Fatal]
  - Bone pain [Unknown]
  - Arthralgia [Unknown]
  - Cerebrovascular accident [Fatal]
  - Diarrhoea [Unknown]
  - Hepatitis B reactivation [Unknown]
  - Headache [Unknown]
  - Herpes zoster [Unknown]
  - Leukopenia [Unknown]
  - Hepatic cirrhosis [Unknown]
  - Malaise [Unknown]
  - Cardiac failure congestive [Fatal]
  - End stage renal disease [Fatal]
  - Gastrointestinal haemorrhage [Fatal]
  - Nausea [Unknown]
  - Hypoaesthesia [Unknown]
  - Mouth ulceration [Unknown]
  - Pancreatic carcinoma [Fatal]
  - Pneumonia [Fatal]
  - Pulmonary tuberculosis [Unknown]
  - Rash [Unknown]
  - Thrombocytopenia [Unknown]
  - Traumatic intracranial haemorrhage [Fatal]
  - Treatment failure [Unknown]
  - Pollakiuria [Unknown]
